FAERS Safety Report 24650097 (Version 12)
Quarter: 2025Q3

REPORT INFORMATION
  Report Type: Report from Study
  Country: US (occurrence: US)
  Receive Date: 20241122
  Receipt Date: 20250714
  Transmission Date: 20251021
  Serious: Yes (Other)
  Sender: ACADIA PHARMACEUTICALS
  Company Number: US-ACADIA PHARMACEUTICALS INC.-ACA-2024-TRF-007244

PATIENT

DRUGS (15)
  1. DAYBUE [Suspect]
     Active Substance: TROFINETIDE
     Indication: Rett syndrome
     Dosage: 3 MILLILITER, BID
     Route: 048
  2. DAYBUE [Suspect]
     Active Substance: TROFINETIDE
     Dosage: 6 MILLILITER, BID
     Route: 048
  3. DAYBUE [Suspect]
     Active Substance: TROFINETIDE
     Dosage: 10 MILLILITER, BID
     Route: 048
  4. DAYBUE [Suspect]
     Active Substance: TROFINETIDE
     Dosage: 30 MILLILITER, BID
     Route: 048
  5. DAYBUE [Suspect]
     Active Substance: TROFINETIDE
     Dosage: 20 MILLILITER, BID
     Route: 048
  6. DAYBUE [Suspect]
     Active Substance: TROFINETIDE
     Dosage: 30 MILLILITER, BID
     Route: 048
  7. DAYBUE [Suspect]
     Active Substance: TROFINETIDE
     Dosage: 10 MILLILITER, BID
     Route: 048
     Dates: start: 20241227
  8. DAYBUE [Suspect]
     Active Substance: TROFINETIDE
     Dosage: 13 MILLILITER, BID
     Route: 048
  9. DAYBUE [Suspect]
     Active Substance: TROFINETIDE
     Dosage: 12 MILLILITER, BID
     Route: 048
  10. DAYBUE [Suspect]
     Active Substance: TROFINETIDE
     Dosage: 15 MILLILITER, BID
     Route: 048
  11. DAYBUE [Suspect]
     Active Substance: TROFINETIDE
     Dosage: 18 MILLILITER, BID
     Route: 048
  12. DAYBUE [Suspect]
     Active Substance: TROFINETIDE
     Dosage: 10-15 MILLILITER, BID
     Route: 065
  13. DAYBUE [Suspect]
     Active Substance: TROFINETIDE
     Dosage: 20 MILLILITER, BID
  14. DAYBUE [Suspect]
     Active Substance: TROFINETIDE
     Dosage: 13 MILLILITER, BID
  15. DAYBUE [Suspect]
     Active Substance: TROFINETIDE
     Dosage: 18 MILLILITER, BID

REACTIONS (13)
  - Atypical pneumonia [Recovering/Resolving]
  - Seizure [Unknown]
  - Aerophagia [Not Recovered/Not Resolved]
  - Flatulence [Not Recovered/Not Resolved]
  - Sleep disorder [Not Recovered/Not Resolved]
  - Constipation [Not Recovered/Not Resolved]
  - Drug intolerance [Unknown]
  - Vomiting [Not Recovered/Not Resolved]
  - Diarrhoea [Recovered/Resolved]
  - Diarrhoea [Not Recovered/Not Resolved]
  - Product use complaint [Not Recovered/Not Resolved]
  - Underdose [Recovered/Resolved]
  - Underdose [Not Recovered/Not Resolved]

NARRATIVE: CASE EVENT DATE: 20241202
